FAERS Safety Report 12954723 (Version 3)
Quarter: 2017Q2

REPORT INFORMATION
  Report Type: Spontaneous
  Country: US (occurrence: US)
  Receive Date: 20161118
  Receipt Date: 20170419
  Transmission Date: 20170830
  Serious: Yes (Other)
  Sender: FDA-Public Use
  Company Number: US-EMD SERONO-8118114

PATIENT
  Sex: Female

DRUGS (1)
  1. REBIF [Suspect]
     Active Substance: INTERFERON BETA-1A
     Indication: MULTIPLE SCLEROSIS
     Route: 058
     Dates: start: 2002, end: 2015

REACTIONS (2)
  - Acute kidney injury [Not Recovered/Not Resolved]
  - Anaemia [Recovered/Resolved]

NARRATIVE: CASE EVENT DATE: 2014
